FAERS Safety Report 6897641-9 (Version None)
Quarter: 2010Q3

REPORT INFORMATION
  Report Type: 
  Country: None (occurrence: None)
  Receive Date: 20100802
  Receipt Date: 20070625
  Transmission Date: 20110219
  Serious: Yes (Other)
  Sender: FDA-Public Use
  Company Number: US-PFIZER INC-2007052668

PATIENT
  Sex: Male

DRUGS (3)
  1. LYRICA [Suspect]
     Indication: NEURALGIA
     Dates: start: 20070401
  2. GABAPENTIN [Concomitant]
  3. CORTICOSTEROIDS [Concomitant]

REACTIONS (2)
  - MANIA [None]
  - PERSONALITY CHANGE [None]
